FAERS Safety Report 23343148 (Version 2)
Quarter: 2024Q2

REPORT INFORMATION
  Report Type: Spontaneous
  Country: US (occurrence: US)
  Receive Date: 20231227
  Receipt Date: 20240515
  Transmission Date: 20240716
  Serious: No
  Sender: FDA-Public Use
  Company Number: US-009507513-2312USA005527

PATIENT
  Age: 26 Year
  Sex: Female

DRUGS (7)
  1. NOXAFIL [Suspect]
     Active Substance: POSACONAZOLE
     Indication: Antifungal prophylaxis
     Dosage: 400 MILLIGRAM, QD (ALMOST 4 YEARS)
     Route: 048
  2. NOXAFIL [Suspect]
     Active Substance: POSACONAZOLE
     Dosage: 771 NANOGRAM PER MILLILITER QD (ALMOST 4 YEARS)
  3. NOXAFIL [Suspect]
     Active Substance: POSACONAZOLE
     Dosage: 300 MILLIGRAM POST-PYLORIC
  4. NOXAFIL [Suspect]
     Active Substance: POSACONAZOLE
     Dosage: LESS THAN 100 NANOGRAM PER MILLILITER (5 DAYS)
  5. NOXAFIL [Suspect]
     Active Substance: POSACONAZOLE
     Dosage: 300 MILLIGRAM, QD
     Route: 042
  6. NOXAFIL [Suspect]
     Active Substance: POSACONAZOLE
     Dosage: 163 NANOGRAM PER MILLILITER (1 DAY)
     Route: 042
  7. TACROLIMUS [Interacting]
     Active Substance: TACROLIMUS
     Indication: Lung transplant
     Dosage: UNK

REACTIONS (5)
  - Drug level below therapeutic [Unknown]
  - Wrong technique in product usage process [Unknown]
  - Incorrect dose administered [Unknown]
  - Incorrect route of product administration [Unknown]
  - Inhibitory drug interaction [Unknown]

NARRATIVE: CASE EVENT DATE: 20221001
